FAERS Safety Report 17210949 (Version 2)
Quarter: 2020Q1

REPORT INFORMATION
  Report Type: Report from Study
  Country: US (occurrence: US)
  Receive Date: 20191227
  Receipt Date: 20200213
  Transmission Date: 20200409
  Serious: Yes (Death, Hospitalization)
  Sender: FDA-Public Use
  Company Number: US-ACTELION-A-NJ2019-199843

PATIENT
  Age: 39 Year
  Sex: Female

DRUGS (4)
  1. SODIUM CHLORIDE. [Concomitant]
     Active Substance: SODIUM CHLORIDE
  2. UPTRAVI [Suspect]
     Active Substance: SELEXIPAG
     Indication: PULMONARY ARTERIAL HYPERTENSION
     Dosage: 200 MCG, BID
     Route: 048
     Dates: start: 20190717, end: 20191114
  3. HYDROMORPHONE [Concomitant]
     Active Substance: HYDROMORPHONE
  4. DILAUDID [Concomitant]
     Active Substance: HYDROMORPHONE HYDROCHLORIDE

REACTIONS (9)
  - Arrhythmia [Unknown]
  - Sickle cell anaemia with crisis [Fatal]
  - Blood pressure decreased [Unknown]
  - Lethargy [Unknown]
  - Heart rate irregular [Unknown]
  - Asthenia [Unknown]
  - Cardiac murmur [Unknown]
  - Heart rate decreased [Unknown]
  - Judgement impaired [Unknown]

NARRATIVE: CASE EVENT DATE: 20191112
